FAERS Safety Report 8017235-1 (Version None)
Quarter: 2012Q1

REPORT INFORMATION
  Report Type: 
  Country: None (occurrence: None)
  Receive Date: 20120102
  Receipt Date: 20111226
  Transmission Date: 20120608
  Serious: Yes (Other)
  Sender: FDA-Public Use
  Company Number: PHHY2011JP110435

PATIENT
  Age: 73 Year
  Sex: Female
  Weight: 39 kg

DRUGS (2)
  1. EXFORGE [Suspect]
     Indication: HYPERTENSION
     Dosage: 1 DF, DAILY
     Route: 048
     Dates: start: 20110928, end: 20111022
  2. ALDOMET [Concomitant]
     Indication: HYPERTENSION
     Dosage: 250 MG, DAILY
     Route: 048
     Dates: start: 20110913

REACTIONS (11)
  - ERYTHEMA [None]
  - BLOOD BLISTER [None]
  - DRUG ERUPTION [None]
  - PERIPHERAL VASCULAR DISORDER [None]
  - ECZEMA ASTEATOTIC [None]
  - PRURITUS [None]
  - HAEMORRHAGE SUBCUTANEOUS [None]
  - RASH ERYTHEMATOUS [None]
  - PAIN [None]
  - BLISTER [None]
  - SCRATCH [None]
